FAERS Safety Report 5475405-0 (Version None)
Quarter: 2007Q4

REPORT INFORMATION
  Report Type: 
  Country: None (occurrence: None)
  Receive Date: 20071003
  Receipt Date: 20070925
  Transmission Date: 20080405
  Serious: Yes (Other)
  Sender: FDA-Public Use
  Company Number: PHEH2007US12797

PATIENT
  Sex: Female

DRUGS (2)
  1. MIACALCIN [Suspect]
     Dates: start: 19980901, end: 19990101
  2. TYLENOL (CAPLET) [Suspect]
     Dates: start: 20070601, end: 20070601

REACTIONS (2)
  - NEURALGIA [None]
  - VASCULITIS [None]
